FAERS Safety Report 18790360 (Version 1)
Quarter: 2021Q1

REPORT INFORMATION
  Report Type: Spontaneous
  Country: CN (occurrence: CN)
  Receive Date: 20210126
  Receipt Date: 20210126
  Transmission Date: 20210419
  Serious: Yes (Death, Other)
  Sender: FDA-Public Use
  Company Number: CN-BAYER-2021-038118

PATIENT
  Age: 41 Year
  Sex: Female

DRUGS (2)
  1. STIVARGA [Suspect]
     Active Substance: REGORAFENIB
     Indication: HEPATIC CANCER
     Dosage: 160 MG, QD
     Route: 048
     Dates: start: 201903, end: 202001
  2. NEXAVAR [Suspect]
     Active Substance: SORAFENIB
     Indication: HEPATIC CANCER
     Dosage: 400 MG, QD
     Route: 048
     Dates: start: 201709, end: 201903

REACTIONS (3)
  - Metastases to lung [None]
  - Hepatic cancer [Fatal]
  - Off label use [None]

NARRATIVE: CASE EVENT DATE: 201709
